FAERS Safety Report 12763324 (Version 1)
Quarter: 2016Q3

REPORT INFORMATION
  Report Type: Spontaneous
  Country: US (occurrence: US)
  Receive Date: 20160915
  Receipt Date: 20160915
  Transmission Date: 20161109
  Serious: No
  Sender: FDA-Public Use
  Company Number: None

PATIENT
  Sex: Female

DRUGS (2)
  1. STELARA [Suspect]
     Active Substance: USTEKINUMAB
     Indication: PSORIATIC ARTHROPATHY
     Dosage: 45MG WEEK 0 AND WEEK 4 SQ
     Route: 058
     Dates: start: 201606
  2. STELARA [Suspect]
     Active Substance: USTEKINUMAB
     Indication: PSORIASIS
     Dosage: 45MG WEEK 0 AND WEEK 4 SQ
     Route: 058
     Dates: start: 201606

REACTIONS (2)
  - Myalgia [None]
  - Arthralgia [None]
